FAERS Safety Report 4579088-3 (Version None)
Quarter: 2005Q1

REPORT INFORMATION
  Report Type: 
  Country: None (occurrence: None)
  Receive Date: 20050119
  Receipt Date: 20040802
  Transmission Date: 20050727
  Serious: Yes (Hospitalization)
  Sender: FDA-Public Use
  Company Number: A03200402535

PATIENT
  Age: 78 Year
  Sex: Male
  Weight: 93.441 kg

DRUGS (5)
  1. PLAVIX [Suspect]
     Indication: ENDARTERECTOMY
     Dosage: 75 MG QD - ORAL
     Route: 048
     Dates: start: 20040101, end: 20040701
  2. INSULIN GLARGINE [Concomitant]
  3. POTASSIUM CHLORIDE [Concomitant]
  4. METOLAZONE [Concomitant]
  5. TORSEMIDE [Concomitant]

REACTIONS (3)
  - ANAEMIA [None]
  - ASTHENIA [None]
  - BONE MARROW DEPRESSION [None]
